FAERS Safety Report 24873057 (Version 1)
Quarter: 2025Q1

REPORT INFORMATION
  Report Type: Spontaneous
  Country: US (occurrence: None)
  Receive Date: 20250121
  Receipt Date: 20250121
  Transmission Date: 20250409
  Serious: Yes (Death)
  Sender: FDA-CTU
  Company Number: None

PATIENT
  Age: 48 Year
  Sex: Male

DRUGS (1)
  1. JULUCA [Suspect]
     Active Substance: DOLUTEGRAVIR SODIUM\RILPIVIRINE HYDROCHLORIDE
     Indication: HIV infection
     Dosage: OTHER QUANTITY : 50MG-20MG ;?FREQUENCY : DAILY;?
     Route: 048

REACTIONS (3)
  - Peripheral coldness [None]
  - Muscle rigidity [None]
  - Fall [None]

NARRATIVE: CASE EVENT DATE: 20241212
